FAERS Safety Report 9834865 (Version 1)
Quarter: 2014Q1

REPORT INFORMATION
  Report Type: Spontaneous
  Country: CA (occurrence: CA)
  Receive Date: 20140122
  Receipt Date: 20140122
  Transmission Date: 20141002
  Serious: Yes (Other)
  Sender: FDA-Public Use
  Company Number: CA-GLAXOSMITHKLINE-A1006686A

PATIENT
  Age: 51 Year
  Sex: Male

DRUGS (1)
  1. VOTRIENT [Suspect]
     Indication: RENAL CANCER METASTATIC
     Dosage: 800MG PER DAY
     Route: 048
     Dates: start: 20121219

REACTIONS (7)
  - Nasopharyngitis [Recovered/Resolved]
  - Oropharyngeal pain [Recovered/Resolved]
  - Throat irritation [Recovered/Resolved]
  - Throat irritation [Recovered/Resolved]
  - Rhinorrhoea [Recovered/Resolved]
  - Nasal congestion [Recovered/Resolved]
  - Renal cancer [Unknown]
